FAERS Safety Report 7906260-4 (Version None)
Quarter: 2011Q4

REPORT INFORMATION
  Report Type: 
  Country: None (occurrence: None)
  Receive Date: 20111110
  Receipt Date: 20101115
  Transmission Date: 20120403
  Serious: No
  Sender: FDA-Public Use
  Company Number: US-BAYER-2010-001035

PATIENT
  Sex: Female

DRUGS (1)
  1. CLIMARA [Suspect]
     Dosage: 0.025 MG, QD
     Route: 062

REACTIONS (4)
  - THERAPEUTIC PRODUCT INEFFECTIVE [None]
  - DEPRESSED MOOD [None]
  - IRRITABILITY [None]
  - EMOTIONAL DISORDER [None]
